FAERS Safety Report 7098200-8 (Version None)
Quarter: 2010Q4

REPORT INFORMATION
  Report Type: 
  Country: None (occurrence: None)
  Receive Date: 20101112
  Receipt Date: 20091130
  Transmission Date: 20110411
  Serious: No
  Sender: FDA-Public Use
  Company Number: US-KINGPHARMUSA00001-K200901501

PATIENT
  Age: 62 Year
  Sex: Female
  Weight: 72.562 kg

DRUGS (2)
  1. SKELAXIN [Suspect]
     Indication: BACK PAIN
     Dosage: 800 MG, EVERY 6 HOURS
     Route: 048
     Dates: start: 20090429, end: 20090401
  2. ATENOLOL [Concomitant]
     Indication: HYPERTENSION
     Dosage: UNK
     Route: 048

REACTIONS (4)
  - DRUG INEFFECTIVE [None]
  - HEAD DISCOMFORT [None]
  - HYPOAESTHESIA [None]
  - PARAESTHESIA [None]
